FAERS Safety Report 6442786-0 (Version None)
Quarter: 2009Q4

REPORT INFORMATION
  Report Type: 
  Country: None (occurrence: None)
  Receive Date: 20091117
  Receipt Date: 20091112
  Transmission Date: 20100525
  Serious: Yes (Death)
  Sender: FDA-Public Use
  Company Number: PHHY2009MX49785

PATIENT
  Age: 62 Year
  Sex: Female

DRUGS (1)
  1. FEMARA [Suspect]
     Dosage: 4 TABLETS (2.5 MG) PER DAY
     Route: 048
     Dates: end: 20090530

REACTIONS (1)
  - THROMBOSIS [None]
